FAERS Safety Report 5937993-7 (Version None)
Quarter: 2008Q4

REPORT INFORMATION
  Report Type: 
  Country: None (occurrence: None)
  Receive Date: 20081031
  Receipt Date: 20081021
  Transmission Date: 20090506
  Serious: Yes (Hospitalization, Other)
  Sender: FDA-Public Use
  Company Number: FR-ROCHE-591274

PATIENT
  Sex: Male

DRUGS (5)
  1. PEGASYS [Suspect]
     Indication: HEPATITIS C
     Dosage: STRENGHTH: INJECTABLE SOLUTION.
     Route: 065
  2. COPEGUS [Suspect]
     Indication: HEPATITIS C
     Dosage: FREQUENCY: QD.
     Route: 065
  3. NEORECORMON [Concomitant]
     Indication: HEPATITIS
     Route: 065
  4. NEORECORMON [Concomitant]
     Route: 065
  5. NEORECORMON [Concomitant]
     Route: 065

REACTIONS (2)
  - DRUG INEFFECTIVE [None]
  - MYELODYSPLASTIC SYNDROME [None]
